FAERS Safety Report 23622533 (Version 1)
Quarter: 2024Q1

REPORT INFORMATION
  Report Type: Spontaneous
  Country: US (occurrence: None)
  Receive Date: 20240312
  Receipt Date: 20240312
  Transmission Date: 20240410
  Serious: Yes (Hospitalization)
  Sender: FDA-Public Use
  Company Number: None

PATIENT
  Age: 77 Year
  Sex: Male

DRUGS (1)
  1. RASAGILINE [Suspect]
     Active Substance: RASAGILINE\RASAGILINE MESYLATE
     Indication: Parkinsonism
     Dosage: 1MG QD
     Route: 048

REACTIONS (3)
  - Pneumonia [None]
  - Atrial fibrillation [None]
  - Rib fracture [None]
